FAERS Safety Report 5395296-6 (Version None)
Quarter: 2007Q3

REPORT INFORMATION
  Report Type: 
  Country: None (occurrence: None)
  Receive Date: 20070724
  Receipt Date: 20070614
  Transmission Date: 20080115
  Serious: Yes (Other)
  Sender: FDA-Public Use
  Company Number: JP-ASTRAZENECA-2007AP04383

PATIENT
  Weight: 65 kg

DRUGS (1)
  1. MEROPENEM [Suspect]

REACTIONS (1)
  - DERMATITIS EXFOLIATIVE [None]
